FAERS Safety Report 6662224-2 (Version None)
Quarter: 2010Q1

REPORT INFORMATION
  Report Type: 
  Country: None (occurrence: None)
  Receive Date: 20100331
  Receipt Date: 20100322
  Transmission Date: 20100710
  Serious: Yes (Death)
  Sender: FDA-Public Use
  Company Number: GXKR2010GB03367

PATIENT
  Age: 74 Year
  Sex: Male

DRUGS (2)
  1. VINORELBINE [Suspect]
     Indication: LUNG NEOPLASM MALIGNANT
     Dosage: 15 MG, UNK
     Route: 042
     Dates: start: 20090518, end: 20090717
  2. CISPLATIN [Suspect]
     Indication: LUNG NEOPLASM MALIGNANT
     Dosage: 50 MG, UNK
     Route: 042
     Dates: start: 20090518, end: 20090706

REACTIONS (1)
  - INTERSTITIAL LUNG DISEASE [None]
